FAERS Safety Report 14202078 (Version 1)
Quarter: 2017Q4

REPORT INFORMATION
  Report Type: Spontaneous
  Country: AT (occurrence: AT)
  Receive Date: 20171117
  Receipt Date: 20171117
  Transmission Date: 20180321
  Serious: Yes (Death, Other)
  Sender: FDA-Public Use
  Company Number: AT-INCYTE CORPORATION-2017IN009710

PATIENT

DRUGS (2)
  1. JAKAVI [Suspect]
     Active Substance: RUXOLITINIB
     Indication: MYELOFIBROSIS
  2. JAKAVI [Suspect]
     Active Substance: RUXOLITINIB
     Indication: POLYCYTHAEMIA VERA
     Dosage: UNK
     Route: 065

REACTIONS (2)
  - Leukaemic lymphoma [Fatal]
  - B-cell lymphoma [Fatal]
